FAERS Safety Report 5091554-3 (Version None)
Quarter: 2006Q3

REPORT INFORMATION
  Report Type: 
  Country: None (occurrence: None)
  Receive Date: 20060824
  Receipt Date: 20060811
  Transmission Date: 20061208
  Serious: Yes (Death)
  Sender: FDA-Public Use
  Company Number: 2006CT000693

PATIENT
  Age: 36 Year
  Sex: Male
  Weight: 53.7966 kg

DRUGS (12)
  1. VENTAVIS [Suspect]
     Indication: PULMONARY HYPERTENSION
     Dosage: 2.5 UG; 4 X DAY; INH
     Route: 055
     Dates: start: 20051024, end: 20051111
  2. ZANTAC [Concomitant]
  3. ALBUTEROL [Concomitant]
  4. AMBIEN [Concomitant]
  5. CALCITRIOL [Concomitant]
  6. LEVOTHYROXINE SODIUM [Concomitant]
  7. MYCELEX [Concomitant]
  8. OXYGEN [Concomitant]
  9. POTASSIUM CHLORIDE [Concomitant]
  10. SEREVENT [Concomitant]
  11. TORSEMIDE [Concomitant]
  12. SILDENAFIL [Concomitant]

REACTIONS (4)
  - ARRHYTHMIA [None]
  - BLOOD POTASSIUM DECREASED [None]
  - ELECTROLYTE IMBALANCE [None]
  - FATIGUE [None]
